FAERS Safety Report 24455950 (Version 2)
Quarter: 2024Q4

REPORT INFORMATION
  Report Type: Report from Study
  Country: US (occurrence: US)
  Receive Date: 20241017
  Receipt Date: 20241018
  Transmission Date: 20250115
  Serious: No
  Sender: ROCHE
  Company Number: US-ROCHE-3501508

PATIENT
  Age: 67 Year
  Sex: Female
  Weight: 56.7 kg

DRUGS (9)
  1. RITUXAN [Suspect]
     Active Substance: RITUXIMAB
     Indication: Rheumatoid arthritis
     Route: 041
     Dates: start: 202302, end: 202303
  2. ACTEMRA [Suspect]
     Active Substance: TOCILIZUMAB
     Indication: Rheumatoid arthritis
     Route: 065
  3. METHOTREXATE [Concomitant]
     Active Substance: METHOTREXATE
  4. RINVOQ [Concomitant]
     Active Substance: UPADACITINIB
  5. TYLENOL ARTHRITIS PAIN [Concomitant]
     Active Substance: ACETAMINOPHEN
  6. TRAMADOL [Concomitant]
     Active Substance: TRAMADOL
  7. FOLIC ACID [Concomitant]
     Active Substance: FOLIC ACID
  8. ULTRAM [Concomitant]
     Active Substance: TRAMADOL HYDROCHLORIDE
  9. LIDODERM [Concomitant]
     Active Substance: LIDOCAINE

REACTIONS (3)
  - Skin infection [Recovered/Resolved with Sequelae]
  - Drug ineffective [Unknown]
  - Arthralgia [Unknown]
